FAERS Safety Report 11146899 (Version 3)
Quarter: 2016Q4

REPORT INFORMATION
  Report Type: Spontaneous
  Country: US (occurrence: US)
  Receive Date: 20150528
  Receipt Date: 20161118
  Transmission Date: 20170206
  Serious: Yes (Other)
  Sender: FDA-Public Use
  Company Number: US-ASTRAZENECA-2015SE51390

PATIENT
  Age: 60 Year
  Sex: Female
  Weight: 77.1 kg

DRUGS (4)
  1. MOVANTIK [Suspect]
     Active Substance: NALOXEGOL OXALATE
     Indication: CONSTIPATION
     Route: 048
  2. UNKNOWN OPIOIDS [Concomitant]
     Indication: PAIN
     Dosage: 500.0MG UNKNOWN
     Route: 065
  3. FENTANYL. [Concomitant]
     Active Substance: FENTANYL
     Indication: PAIN
     Dosage: 200.0UG UNKNOWN
     Route: 062
  4. OXYCODONE HYDROCHLORIDE. [Concomitant]
     Active Substance: OXYCODONE HYDROCHLORIDE
     Indication: PAIN
     Dosage: 120.0MG UNKNOWN
     Route: 048

REACTIONS (5)
  - Drug withdrawal syndrome [Recovered/Resolved]
  - Headache [Recovered/Resolved]
  - Blood pressure increased [Unknown]
  - Pain [Recovered/Resolved]
  - Seizure [Recovered/Resolved]
